FAERS Safety Report 6895961-5 (Version None)
Quarter: 2010Q3

REPORT INFORMATION
  Report Type: 
  Country: None (occurrence: None)
  Receive Date: 20100802
  Receipt Date: 20100723
  Transmission Date: 20110219
  Serious: Yes (Hospitalization, Other)
  Sender: FDA-Public Use
  Company Number: US-ABBOTT-10P-163-0660041-00

PATIENT
  Sex: Male
  Weight: 113.5 kg

DRUGS (9)
  1. HUMIRA [Suspect]
     Indication: CROHN'S DISEASE
     Route: 058
     Dates: start: 20080801
  2. ZANAFLEX [Concomitant]
     Indication: PRODUCT USED FOR UNKNOWN INDICATION
  3. CYMBALTA [Concomitant]
     Indication: PRODUCT USED FOR UNKNOWN INDICATION
  4. LISINOPRIL [Concomitant]
     Indication: PRODUCT USED FOR UNKNOWN INDICATION
  5. GABAPENTIN [Concomitant]
     Indication: PRODUCT USED FOR UNKNOWN INDICATION
  6. PROMETHAZINE [Concomitant]
     Indication: PRODUCT USED FOR UNKNOWN INDICATION
  7. EMDEDA [Concomitant]
     Indication: PRODUCT USED FOR UNKNOWN INDICATION
  8. TRAZODONE HCL [Concomitant]
     Indication: PRODUCT USED FOR UNKNOWN INDICATION
  9. SYMBICORT [Concomitant]
     Indication: PRODUCT USED FOR UNKNOWN INDICATION
     Route: 055

REACTIONS (5)
  - DEHYDRATION [None]
  - DIARRHOEA [None]
  - INFECTION [None]
  - RENAL FAILURE [None]
  - VOMITING [None]
